FAERS Safety Report 5374932-4 (Version None)
Quarter: 2007Q2

REPORT INFORMATION
  Report Type: 
  Country: None (occurrence: None)
  Receive Date: 20070627
  Receipt Date: 20070627
  Transmission Date: 20071010
  Serious: Yes (Disabling)
  Sender: FDA-Public Use
  Company Number: None

PATIENT
  Age: 45 Year
  Sex: Male
  Weight: 124.7392 kg

DRUGS (1)
  1. LEVAQUIN [Suspect]
     Indication: BRONCHITIS
     Dosage: 750 MG  1  PO
     Route: 048
     Dates: start: 20070604, end: 20070610

REACTIONS (5)
  - GAIT DISTURBANCE [None]
  - LIMB DISCOMFORT [None]
  - MUSCULOSKELETAL STIFFNESS [None]
  - PAIN [None]
  - TENDONITIS [None]
